FAERS Safety Report 8536062-X (Version None)
Quarter: 2012Q3

REPORT INFORMATION
  Report Type: 
  Country: None (occurrence: None)
  Receive Date: 20120725
  Receipt Date: 20120717
  Transmission Date: 20120928
  Serious: Yes (Hospitalization)
  Sender: FDA-Public Use
  Company Number: US-BRISTOL-MYERS SQUIBB COMPANY-16603797

PATIENT
  Sex: Male

DRUGS (1)
  1. YERVOY [Suspect]
     Route: 042

REACTIONS (2)
  - FATIGUE [None]
  - LYMPHADENOPATHY [None]
